FAERS Safety Report 7353170-X (Version None)
Quarter: 2011Q1

REPORT INFORMATION
  Report Type: 
  Country: None (occurrence: None)
  Receive Date: 20110315
  Receipt Date: 20110304
  Transmission Date: 20110831
  Serious: Yes (Hospitalization, Other)
  Sender: FDA-Public Use
  Company Number: US-BAYER-2011-020557

PATIENT
  Sex: Male

DRUGS (4)
  1. CIPRO [Suspect]
     Indication: HEPATITIS
     Dosage: 500 MG, BID
     Route: 048
     Dates: start: 20110201
  2. ANTI-DIABETICS [Concomitant]
     Route: 048
  3. CIPRO [Suspect]
     Dosage: DAILY DOSE 500 MG
     Route: 042
  4. ANTI-DIABETICS [Concomitant]
     Route: 042

REACTIONS (3)
  - DIARRHOEA [None]
  - HEPATIC ENZYME INCREASED [None]
  - NAUSEA [None]
